FAERS Safety Report 10387223 (Version 1)
Quarter: 2014Q3

REPORT INFORMATION
  Report Type: Spontaneous
  Country: US (occurrence: US)
  Receive Date: 20140815
  Receipt Date: 20140815
  Transmission Date: 20150326
  Serious: Yes (Other)
  Sender: FDA-Public Use
  Company Number: US-CELGENEUS-163-21660-14081679

PATIENT

DRUGS (5)
  1. ABRAXANE [Suspect]
     Active Substance: PACLITAXEL
     Route: 065
  2. CARBOPLATIN. [Suspect]
     Active Substance: CARBOPLATIN
     Indication: BREAST CANCER
     Dosage: AUC 2
     Route: 065
  3. BEVACIZUMAB [Suspect]
     Active Substance: BEVACIZUMAB
     Indication: BREAST CANCER
     Dosage: 10 MILLIGRAM/KILOGRAM
     Route: 065
  4. ABRAXANE [Suspect]
     Active Substance: PACLITAXEL
     Indication: BREAST CANCER
     Route: 065
  5. CARBOPLATIN. [Suspect]
     Active Substance: CARBOPLATIN
     Dosage: AUC 1.5
     Route: 065

REACTIONS (22)
  - Syncope [Unknown]
  - Thrombocytopenia [Unknown]
  - Neutropenia [Unknown]
  - Arthralgia [Unknown]
  - Constipation [Unknown]
  - Insomnia [Unknown]
  - Anaemia [Unknown]
  - Skin necrosis [Unknown]
  - Breast cancer [Unknown]
  - Depressed mood [Unknown]
  - Mucosal inflammation [Unknown]
  - Wound complication [Unknown]
  - Hypersensitivity [Unknown]
  - Nausea [Unknown]
  - Infection [Unknown]
  - Hypertension [Unknown]
  - Diarrhoea [Unknown]
  - Febrile neutropenia [Unknown]
  - Fatigue [Unknown]
  - Neuropathy peripheral [Unknown]
  - Leukopenia [Unknown]
  - Headache [Unknown]
